FAERS Safety Report 5677264-X (Version None)
Quarter: 2008Q1

REPORT INFORMATION
  Report Type: 
  Country: None (occurrence: None)
  Receive Date: 20080321
  Receipt Date: 20080321
  Transmission Date: 20080703
  Serious: Yes (Death)
  Sender: FDA-Public Use
  Company Number: None

PATIENT
  Age: 35 Year
  Sex: Male
  Weight: 45 kg

DRUGS (4)
  1. COVIRO LS 30 (LAMIVUDINE/STAVUDINE) [Suspect]
     Indication: HIV INFECTION
     Dosage: 300/60 MG DAILY ORAL
     Route: 048
     Dates: start: 20080102, end: 20080222
  2. VIRAMUNE [Suspect]
     Indication: HIV INFECTION
     Dosage: 200MG TWICE A DAY ORAL
     Route: 048
     Dates: start: 20080201, end: 20080222
  3. AKURIT (RIFAMPICINE/ISONIAZIDE) [Suspect]
     Dosage: 300/150 MG DAILY ORAL
     Route: 048
     Dates: start: 20080201, end: 20080222
  4. AMPHOTERICIN B [Concomitant]

REACTIONS (6)
  - DISEASE PROGRESSION [None]
  - HEADACHE [None]
  - MENINGITIS CRYPTOCOCCAL [None]
  - NEPHROPATHY TOXIC [None]
  - RENAL FAILURE ACUTE [None]
  - VOMITING [None]
